FAERS Safety Report 4726341-6 (Version None)
Quarter: 2005Q3

REPORT INFORMATION
  Report Type: 
  Country: None (occurrence: None)
  Receive Date: 20050725
  Receipt Date: 20050714
  Transmission Date: 20060218
  Serious: Yes (Life-Threatening, Hospitalization, Other)
  Sender: FDA-Public Use
  Company Number: 2005-06-0416

PATIENT
  Age: 41 Year
  Sex: Male
  Weight: 61 kg

DRUGS (9)
  1. PEG-INTRON [Suspect]
     Indication: HEPATITIS C
     Dosage: 100 MCG QW SUBCUTANEOUS
     Route: 058
     Dates: start: 20050201, end: 20050517
  2. REBETOL [Suspect]
     Indication: HEPATITIS C
     Dosage: 800-400 MG* ORAL
     Route: 048
     Dates: start: 20050201, end: 20050307
  3. REBETOL [Suspect]
     Indication: HEPATITIS C
     Dosage: 800-400 MG* ORAL
     Route: 048
     Dates: start: 20050201, end: 20050519
  4. REBETOL [Suspect]
     Indication: HEPATITIS C
     Dosage: 800-400 MG* ORAL
     Route: 048
     Dates: start: 20050308, end: 20050519
  5. VEGETAMIN [Concomitant]
  6. BIPERIDEN HYDROCHLORIDE [Concomitant]
  7. RISPERIDONE [Concomitant]
  8. NITRAZEPAM [Concomitant]
  9. BROMAZEPAM [Concomitant]

REACTIONS (7)
  - ANAEMIA [None]
  - APNOEA [None]
  - DEPRESSED LEVEL OF CONSCIOUSNESS [None]
  - DISSEMINATED INTRAVASCULAR COAGULATION [None]
  - OVERDOSE [None]
  - PERONEAL NERVE PALSY [None]
  - SUICIDE ATTEMPT [None]
